FAERS Safety Report 15794935 (Version 1)
Quarter: 2019Q1

REPORT INFORMATION
  Report Type: Spontaneous
  Country: US (occurrence: US)
  Receive Date: 20190107
  Receipt Date: 20190107
  Transmission Date: 20190417
  Serious: Yes (Other)
  Sender: FDA-Public Use
  Company Number: None

PATIENT
  Age: 47 Year
  Sex: Female
  Weight: 92.25 kg

DRUGS (6)
  1. ZYRTEC [Concomitant]
     Active Substance: CETIRIZINE HYDROCHLORIDE
  2. ZONISAMIDE. [Concomitant]
     Active Substance: ZONISAMIDE
  3. TIZANIDINE. [Concomitant]
     Active Substance: TIZANIDINE
  4. AIMOVIG [Suspect]
     Active Substance: ERENUMAB-AOOE
     Indication: MIGRAINE
     Dosage: ?          QUANTITY:1 INJECTION(S);OTHER FREQUENCY:ONCE PER MONTH;?
     Route: 030
     Dates: start: 20181016, end: 20181218
  5. HCL [Concomitant]
  6. ZEMBRACE SYMTOUCH [Concomitant]
     Active Substance: SUMATRIPTAN SUCCINATE

REACTIONS (6)
  - Menstruation delayed [None]
  - Emotional disorder [None]
  - Lethargy [None]
  - Blood pressure increased [None]
  - Depression [None]
  - Premenstrual syndrome [None]

NARRATIVE: CASE EVENT DATE: 20181217
